FAERS Safety Report 17559718 (Version 1)
Quarter: 2020Q1

REPORT INFORMATION
  Report Type: Spontaneous
  Country: US (occurrence: US)
  Receive Date: 20200319
  Receipt Date: 20200319
  Transmission Date: 20200409
  Serious: No
  Sender: FDA-Public Use
  Company Number: US-SA-2020SA070362

PATIENT
  Sex: Female

DRUGS (1)
  1. DUPIXENT [Suspect]
     Active Substance: DUPILUMAB
     Indication: DERMATITIS ATOPIC
     Dosage: 200 MG, QOW
     Route: 058
     Dates: start: 20200123

REACTIONS (5)
  - Oral herpes [Unknown]
  - Product use issue [Unknown]
  - Rash [Unknown]
  - Dry skin [Unknown]
  - Photophobia [Unknown]

NARRATIVE: CASE EVENT DATE: 2020
